FAERS Safety Report 5367669-9 (Version None)
Quarter: 2007Q2

REPORT INFORMATION
  Report Type: 
  Country: None (occurrence: None)
  Receive Date: 20070619
  Receipt Date: 20070605
  Transmission Date: 20071010
  Serious: Yes (Hospitalization)
  Sender: FDA-Public Use
  Company Number: S07-FRA-02617-01

PATIENT
  Age: 94 Year
  Sex: Female

DRUGS (4)
  1. CITALOPRAM HYDROBROMIDE [Suspect]
     Dosage: 20 MG QD PO
     Route: 048
     Dates: end: 20070206
  2. THERALENE (ALIMEMAZINE TARTRATE) [Concomitant]
  3. VASTAREL (TRIMETAZIDINE HYDROCHLORIDE) [Concomitant]
  4. KARDEGIC (ACETYLSALICYLIC ACID) [Concomitant]

REACTIONS (5)
  - ANAEMIA FOLATE DEFICIENCY [None]
  - HAEMATOMA [None]
  - IRON DEFICIENCY [None]
  - MICROCYTIC ANAEMIA [None]
  - THROMBOCYTOPENIA [None]
